FAERS Safety Report 18943360 (Version 3)
Quarter: 2021Q2

REPORT INFORMATION
  Report Type: Report from Study
  Country: US (occurrence: US)
  Receive Date: 20210226
  Receipt Date: 20210401
  Transmission Date: 20210717
  Serious: Yes (Hospitalization, Other)
  Sender: FDA-Public Use
  Company Number: US-ACADIA PHARMACEUTICALS INC.-ACA-2021-PIM-000681

PATIENT
  Age: 76 Year
  Sex: Male
  Weight: 64 kg

DRUGS (25)
  1. NUPLAZID [Suspect]
     Active Substance: PIMAVANSERIN TARTRATE
     Indication: HALLUCINATION
     Dosage: 34 MILLIGRAM, QD BEFORE LUNCH
     Route: 048
     Dates: start: 20200717
  2. EFFEXOR [Concomitant]
     Active Substance: VENLAFAXINE HYDROCHLORIDE
     Dosage: 75 MILLIGRAM, QD
     Route: 048
     Dates: start: 20210214, end: 20210218
  3. TOPROL XL [Concomitant]
     Active Substance: METOPROLOL SUCCINATE
     Dosage: 50 MILLIGRAM, QD
     Route: 048
     Dates: start: 20200304
  4. CARBIDOPA/LEVODOPA [Concomitant]
     Active Substance: CARBIDOPA\LEVODOPA
     Dosage: 50/200 FIVE TIMES A DAY (UP TO SIX TIMES A DAY)
  5. SINEMET [Concomitant]
     Active Substance: CARBIDOPA\LEVODOPA
     Dosage: 500?200 MG PER CR, 1.5 TABLETS 5 TIMES A DAY(BUBBLE 5TH DOSE SEPARATELY)
     Route: 048
     Dates: start: 20210209
  6. ZESTRIL [Concomitant]
     Active Substance: LISINOPRIL
     Dosage: 40 MILLIGRAM, QD
     Route: 048
     Dates: start: 20210214
  7. SEROQUEL [Concomitant]
     Active Substance: QUETIAPINE FUMARATE
     Dosage: 25 MG, HALF PILL NIGHTLY INCREASE GRADUALLY 2 PILL NIGHTLY AND 1 PILL MIDDAY
     Dates: start: 20210120, end: 20210213
  8. LISINOPRIL. [Concomitant]
     Active Substance: LISINOPRIL
     Dosage: 20 MILLIGRAM
  9. SYNTHROID [Concomitant]
     Active Substance: LEVOTHYROXINE SODIUM
     Dosage: 50 MCG DAILY
     Route: 048
     Dates: start: 20201222
  10. PRAVACHOL [Concomitant]
     Active Substance: PRAVASTATIN SODIUM
     Dosage: 20 MG QD
     Route: 048
     Dates: start: 20201222
  11. TYLENOL [Concomitant]
     Active Substance: ACETAMINOPHEN
     Indication: HEADACHE
     Dosage: PRN
  12. KLONOPIN [Concomitant]
     Active Substance: CLONAZEPAM
     Dosage: 0.5 MG AT BEDTIME DAILY HS
     Route: 048
     Dates: start: 20201222, end: 20210218
  13. MELATONIN [Concomitant]
     Active Substance: MELATONIN
     Dosage: 10 MILLIGRAM, QD AT NIGHT
     Route: 048
  14. PRILOSEC [Concomitant]
     Active Substance: OMEPRAZOLE MAGNESIUM
     Dosage: 40 MILLIGRAM, QD
     Route: 048
     Dates: start: 20200917
  15. STOOL SOFTENER (DOCUSATE) [Concomitant]
     Active Substance: DOCUSATE
     Dosage: PRN
  16. NUPLAZID [Suspect]
     Active Substance: PIMAVANSERIN TARTRATE
     Indication: PARKINSON^S DISEASE PSYCHOSIS
     Dosage: 34 MILLIGRAM, QD
     Route: 065
     Dates: start: 202003
  17. SINEMET [Concomitant]
     Active Substance: CARBIDOPA\LEVODOPA
     Dosage: 500?200 MG PER CR, 1.5 TABLETS 5 TIMES A DAY (5TH DOSE SEPARATELY)
     Route: 048
     Dates: start: 20200924
  18. SENOKOT [Concomitant]
     Active Substance: SENNOSIDES
     Indication: CONSTIPATION
     Dosage: 8.6 MG TABLET PRN
     Route: 048
  19. TYLENOL [Concomitant]
     Active Substance: ACETAMINOPHEN
     Indication: PAIN
     Dosage: 500 MG THRICE A DAY
     Route: 048
  20. LEVOTHYROXINE. [Concomitant]
     Active Substance: LEVOTHYROXINE
  21. VENLAFAXINE [Concomitant]
     Active Substance: VENLAFAXINE HYDROCHLORIDE
     Dosage: 75 MILLIGRAM, BID
  22. METOPROLOL. [Concomitant]
     Active Substance: METOPROLOL
     Dosage: 50 MILLIGRAM, QD
  23. NUPLAZID [Suspect]
     Active Substance: PIMAVANSERIN TARTRATE
     Indication: DELUSION
  24. HALDOL [Concomitant]
     Active Substance: HALOPERIDOL
     Indication: AGITATION
  25. PRAVASTATIN SODIUM. [Concomitant]
     Active Substance: PRAVASTATIN SODIUM
     Dosage: 20 MILLIGRAM, QD

REACTIONS (22)
  - Subdural haematoma [Unknown]
  - Hallucination, visual [Unknown]
  - Aggression [Not Recovered/Not Resolved]
  - Facial bones fracture [Recovered/Resolved]
  - Fall [Unknown]
  - Delusion [Unknown]
  - Skin abrasion [Unknown]
  - Hallucination [Not Recovered/Not Resolved]
  - Delirium [Not Recovered/Not Resolved]
  - General physical health deterioration [Not Recovered/Not Resolved]
  - Abnormal behaviour [Not Recovered/Not Resolved]
  - Haematoma [Unknown]
  - Skin laceration [Unknown]
  - Contusion [Not Recovered/Not Resolved]
  - Agitation [Unknown]
  - Therapeutic response unexpected [Not Recovered/Not Resolved]
  - Therapeutic product effect decreased [Not Recovered/Not Resolved]
  - Balance disorder [Unknown]
  - Fall [Unknown]
  - Hallucination [Unknown]
  - Fall [Not Recovered/Not Resolved]
  - Confusional state [Not Recovered/Not Resolved]

NARRATIVE: CASE EVENT DATE: 202007
